FAERS Safety Report 7111031-5 (Version None)
Quarter: 2010Q4

REPORT INFORMATION
  Report Type: 
  Country: None (occurrence: None)
  Receive Date: 20101118
  Receipt Date: 20101108
  Transmission Date: 20110411
  Serious: Yes (Hospitalization)
  Sender: FDA-Public Use
  Company Number: US-SANOFI-AVENTIS-2010SA068564

PATIENT
  Age: 72 Year
  Sex: Female

DRUGS (4)
  1. LOVENOX [Suspect]
     Route: 065
  2. IXABEPILONE [Suspect]
     Indication: ENDOMETRIAL CANCER
     Route: 051
     Dates: start: 20100504
  3. CARBOPLATIN [Suspect]
     Indication: ENDOMETRIAL CANCER
     Route: 051
     Dates: start: 20100504
  4. BEVACIZUMAB [Suspect]
     Indication: ENDOMETRIAL CANCER
     Route: 051
     Dates: start: 20100504

REACTIONS (5)
  - ACCIDENTAL OVERDOSE [None]
  - BLOOD SODIUM DECREASED [None]
  - CHILLS [None]
  - PELVIC INFECTION [None]
  - RECTAL HAEMORRHAGE [None]
